FAERS Safety Report 9150940 (Version 1)
Quarter: 2013Q1

REPORT INFORMATION
  Report Type: Spontaneous
  Country: US (occurrence: US)
  Receive Date: 20130308
  Receipt Date: 20130308
  Transmission Date: 20140127
  Serious: No
  Sender: FDA-Public Use
  Company Number: US-GLAXOSMITHKLINE-A0968997A

PATIENT
  Age: 60 Year
  Sex: Male

DRUGS (4)
  1. OLUX-E FOAM 0.05% [Suspect]
     Indication: PITYRIASIS
     Route: 061
     Dates: start: 20120307
  2. DIOVAN [Concomitant]
  3. NEXIUM [Concomitant]
  4. ALBUTEROL [Concomitant]

REACTIONS (1)
  - Paraesthesia oral [Not Recovered/Not Resolved]
